FAERS Safety Report 25458750 (Version 1)
Quarter: 2025Q2

REPORT INFORMATION
  Report Type: Spontaneous
  Country: US (occurrence: US)
  Receive Date: 20250620
  Receipt Date: 20250620
  Transmission Date: 20250716
  Serious: Yes (Hospitalization, Other)
  Sender: GRAVITI PHARMACEUTICALS PRIVATE LIMITED
  Company Number: US-GRAVITIPHARMA-GRA-2506-US-LIT-0286

PATIENT

DRUGS (2)
  1. AMLODIPINE BESYLATE [Suspect]
     Active Substance: AMLODIPINE BESYLATE
     Indication: Product used for unknown indication
     Route: 048
  2. LISINOPRIL [Suspect]
     Active Substance: LISINOPRIL
     Indication: Product used for unknown indication
     Route: 048

REACTIONS (10)
  - Hypotension [Unknown]
  - Tachycardia [Unknown]
  - Leukocytosis [Unknown]
  - Renal injury [Unknown]
  - Agitation [Unknown]
  - Distributive shock [Unknown]
  - Toxicity to various agents [Unknown]
  - Drug interaction [Unknown]
  - Intentional product misuse [Unknown]
  - Intentional overdose [Unknown]
